FAERS Safety Report 8401804-0 (Version None)
Quarter: 2012Q2

REPORT INFORMATION
  Report Type: 
  Country: None (occurrence: None)
  Receive Date: 20120529
  Receipt Date: 20080916
  Transmission Date: 20120825
  Serious: Yes (Hospitalization)
  Sender: FDA-Public Use
  Company Number: 004555

PATIENT
  Age: 60 Year
  Sex: Male

DRUGS (2)
  1. INSULIN (INSULIN) [Concomitant]
  2. PLETAL [Suspect]
     Indication: SUBCLAVIAN STEAL SYNDROME
     Dosage: 200 MG, DAILY DOSE, ORAL ; 200 MG, DAILY DOSE, ORAL
     Route: 048

REACTIONS (2)
  - DRUG INEFFECTIVE [None]
  - SUBCLAVIAN STEAL SYNDROME [None]
